FAERS Safety Report 23565196 (Version 1)
Quarter: 2024Q1

REPORT INFORMATION
  Report Type: Spontaneous
  Country: US (occurrence: None)
  Receive Date: 20240223
  Receipt Date: 20240223
  Transmission Date: 20240410
  Serious: Yes (Disabling)
  Sender: FDA-Public Use
  Company Number: None

PATIENT
  Age: 80 Year
  Sex: Female
  Weight: 42.84 kg

DRUGS (7)
  1. PROLIA [Suspect]
     Active Substance: DENOSUMAB
     Dosage: OTHER QUANTITY : 1 INJECTION(S);?
  2. ELIQUIS [Concomitant]
  3. METOPROLOL [Concomitant]
     Active Substance: METOPROLOL
  4. MELOXICAM [Concomitant]
     Active Substance: MELOXICAM
  5. lsinopril [Concomitant]
  6. FAMOTIDINE [Concomitant]
     Active Substance: FAMOTIDINE
  7. MONTELUKAST [Concomitant]

REACTIONS (42)
  - Dental restoration failure [None]
  - Dental restoration failure [None]
  - Jaw disorder [None]
  - Ear pain [None]
  - Masticatory pain [None]
  - Eye pain [None]
  - Pain in extremity [None]
  - Arthralgia [None]
  - Pruritus [None]
  - Rash [None]
  - Pain [None]
  - Burning sensation [None]
  - Constipation [None]
  - Diarrhoea [None]
  - Gastric dilatation [None]
  - Gait disturbance [None]
  - Bone loss [None]
  - Fall [None]
  - Joint injury [None]
  - Osteoarthritis [None]
  - Osteoporosis [None]
  - Spinal disorder [None]
  - Weight decreased [None]
  - Skin atrophy [None]
  - Product communication issue [None]
  - Throat tightness [None]
  - Insomnia [None]
  - Eyelid disorder [None]
  - Granuloma [None]
  - Rotator cuff syndrome [None]
  - Synovial cyst [None]
  - Skin disorder [None]
  - Scab [None]
  - Palpitations [None]
  - Urinary tract infection [None]
  - Back pain [None]
  - Dizziness [None]
  - Gait disturbance [None]
  - Disorientation [None]
  - Visual impairment [None]
  - Arthralgia [None]
  - Post procedural complication [None]

NARRATIVE: CASE EVENT DATE: 20230712
